FAERS Safety Report 6380205-3 (Version None)
Quarter: 2009Q3

REPORT INFORMATION
  Report Type: 
  Country: None (occurrence: None)
  Receive Date: 20090922
  Receipt Date: 20090831
  Transmission Date: 20100115
  Serious: Yes (Other)
  Sender: FDA-Public Use
  Company Number: WAES 0909USA01082

PATIENT
  Age: 36 Year
  Sex: Female

DRUGS (8)
  1. CRIXIVAN [Suspect]
     Indication: ANTIRETROVIRAL THERAPY
     Dosage: PO
     Route: 048
  2. SUSTIVA [Suspect]
     Indication: ANTIRETROVIRAL THERAPY
  3. DIDANOSINE [Suspect]
     Indication: ANTIRETROVIRAL THERAPY
  4. STAVUDINE [Suspect]
     Indication: ANTIRETROVIRAL THERAPY
  5. NELFINAVIR MESYLATE [Suspect]
     Indication: ANTIRETROVIRAL THERAPY
  6. NEVIRAPINE [Suspect]
     Indication: ANTIRETROVIRAL THERAPY
  7. LAMIVUDINE [Suspect]
     Indication: ANTIRETROVIRAL THERAPY
  8. ZIDOVUDINE [Suspect]
     Indication: ANTIRETROVIRAL THERAPY

REACTIONS (3)
  - GASTRIC VARICES [None]
  - PORTAL HYPERTENSION [None]
  - VARICES OESOPHAGEAL [None]
